FAERS Safety Report 17283628 (Version 3)
Quarter: 2020Q2

REPORT INFORMATION
  Report Type: Spontaneous
  Country: FR (occurrence: FR)
  Receive Date: 20200117
  Receipt Date: 20200406
  Transmission Date: 20200713
  Serious: Yes (Hospitalization, Other)
  Sender: FDA-Public Use
  Company Number: FR-PFIZER INC-2020015345

PATIENT
  Sex: Male
  Weight: 3 kg

DRUGS (11)
  1. CHOLURSO [Concomitant]
     Active Substance: URSODIOL
     Indication: CHOLESTASIS
     Dosage: 2 DF, 1X/DAY
     Route: 064
     Dates: start: 20191119, end: 20191125
  2. VENLAFAXINE HCL [Suspect]
     Active Substance: VENLAFAXINE HYDROCHLORIDE
     Indication: FIBROMYALGIA
  3. SUFENTANIL [Concomitant]
     Active Substance: SUFENTANIL
     Indication: EPIDURAL ANAESTHESIA
     Dosage: UNK
     Route: 064
     Dates: start: 20191125, end: 20191125
  4. ISOFUNDINE [Concomitant]
     Active Substance: CALCIUM CHLORIDE\MAGNESIUM CHLORIDE\MALIC ACID\POTASSIUM CHLORIDE\SODIUM ACETATE\SODIUM CHLORIDE
     Dosage: 500 ML, UNK
     Route: 064
     Dates: start: 20191125, end: 20191125
  5. HUMALOG MIX75/25 [Concomitant]
     Active Substance: INSULIN LISPRO
     Indication: GESTATIONAL DIABETES
     Dosage: 14 IU, 1X/DAY, KWIKPEN
     Route: 064
     Dates: start: 20191017, end: 20191125
  6. MEGAMAG [Concomitant]
     Active Substance: MAGNESIUM ASPARTATE
     Indication: VITAMIN SUPPLEMENTATION
     Dosage: 6 DF, 1X/DAY
     Route: 064
     Dates: start: 20190802, end: 20190823
  7. ROPIVACAINE HYDROCHLORIDE MONOHYDRATE [Concomitant]
     Active Substance: ROPIVACAINE HYDROCHLORIDE
     Indication: EPIDURAL ANAESTHESIA
     Dosage: UNK
     Route: 064
     Dates: start: 20191125, end: 20191125
  8. UMULINE [Concomitant]
     Active Substance: INSULIN HUMAN
     Indication: GESTATIONAL DIABETES
     Dosage: 16 IU, 1X/DAY, KWIKPEN
     Route: 064
     Dates: start: 20191017, end: 20191125
  9. HYDROXYZINE HCL [Suspect]
     Active Substance: HYDROXYZINE HYDROCHLORIDE
     Indication: ANXIETY
     Dosage: 25 MG, 1X/DAY
     Route: 064
     Dates: start: 20191120, end: 20191124
  10. PARACETAMOL [Concomitant]
     Active Substance: ACETAMINOPHEN
     Indication: PAIN
     Dosage: UNKNOWN
     Route: 064
     Dates: start: 201908
  11. VENLAFAXINE HCL [Suspect]
     Active Substance: VENLAFAXINE HYDROCHLORIDE
     Indication: DEPRESSION
     Dosage: 37.5 MG, 1X/DAY
     Route: 064
     Dates: start: 20190330, end: 20191125

REACTIONS (4)
  - Clonus [Recovered/Resolved]
  - Neonatal respiratory distress [Recovered/Resolved]
  - Tremor neonatal [Recovered/Resolved]
  - Foetal exposure during pregnancy [Unknown]

NARRATIVE: CASE EVENT DATE: 20191125
